FAERS Safety Report 5885631-4 (Version None)
Quarter: 2008Q3

REPORT INFORMATION
  Report Type: 
  Country: None (occurrence: None)
  Receive Date: 20080912
  Receipt Date: 20080903
  Transmission Date: 20090109
  Serious: Yes (Other)
  Sender: FDA-Public Use
  Company Number: GXKR2008GB08416

PATIENT
  Age: 9 Year
  Sex: Female

DRUGS (1)
  1. CETIRIZINE [Suspect]
     Dosage: ORAL
     Route: 048
     Dates: start: 20080809

REACTIONS (3)
  - DRUG DISPENSING ERROR [None]
  - EXPIRED DRUG ADMINISTERED [None]
  - HYPERSENSITIVITY [None]
